FAERS Safety Report 11349864 (Version 1)
Quarter: 2015Q3

REPORT INFORMATION
  Report Type: Spontaneous
  Country: FR (occurrence: FR)
  Receive Date: 20150807
  Receipt Date: 20150807
  Transmission Date: 20151125
  Serious: Yes (Hospitalization, Other)
  Sender: FDA-Public Use
  Company Number: FR-JNJFOC-20150800174

PATIENT
  Age: 76 Year
  Sex: Female

DRUGS (7)
  1. REMICADE [Suspect]
     Active Substance: INFLIXIMAB
     Indication: PRODUCT USED FOR UNKNOWN INDICATION
     Route: 042
     Dates: start: 20131009
  2. REMICADE [Suspect]
     Active Substance: INFLIXIMAB
     Indication: PRODUCT USED FOR UNKNOWN INDICATION
     Route: 042
     Dates: start: 20131107, end: 20131107
  3. REMICADE [Suspect]
     Active Substance: INFLIXIMAB
     Indication: PRODUCT USED FOR UNKNOWN INDICATION
     Route: 042
     Dates: start: 20130925
  4. NOVATREX (METHOTREXATE) [Suspect]
     Active Substance: METHOTREXATE SODIUM
     Indication: PRODUCT USED FOR UNKNOWN INDICATION
     Dosage: ON FRIDAY^S
     Route: 048
     Dates: end: 201412
  5. LEVOTHYROX [Concomitant]
     Active Substance: LEVOTHYROXINE
     Dosage: LONG TERM
     Route: 048
  6. TENORMIN [Concomitant]
     Active Substance: ATENOLOL
     Dosage: LONG TERM
     Route: 048
  7. SPECIAFOLDINE [Concomitant]
     Active Substance: FOLIC ACID
     Dosage: 3 TIMES 5 MG ON SATURDAYS
     Route: 048

REACTIONS (7)
  - Pulmonary embolism [Unknown]
  - Herpes virus infection [Recovered/Resolved]
  - Deep vein thrombosis [Unknown]
  - Psoas abscess [Unknown]
  - Whipple^s disease [Unknown]
  - Disseminated tuberculosis [Recovered/Resolved]
  - Haematological malignancy [Unknown]

NARRATIVE: CASE EVENT DATE: 20131109
